FAERS Safety Report 5394839-6 (Version None)
Quarter: 2007Q3

REPORT INFORMATION
  Report Type: 
  Country: None (occurrence: None)
  Receive Date: 20070720
  Receipt Date: 20070710
  Transmission Date: 20080115
  Serious: Yes (Hospitalization, Other)
  Sender: FDA-Public Use
  Company Number: TPA2007A01476

PATIENT
  Age: 73 Year
  Sex: Male
  Weight: 105.6881 kg

DRUGS (3)
  1. ACTOS [Suspect]
     Indication: TYPE 2 DIABETES MELLITUS
     Dosage: 30 MG, 1 IN 1 D, PER ORAL, 15 MG 1 IN 1 D, PER ORAL
     Route: 048
     Dates: start: 20070601
  2. ACTOS [Suspect]
     Indication: TYPE 2 DIABETES MELLITUS
     Dosage: 30 MG, 1 IN 1 D, PER ORAL, 15 MG 1 IN 1 D, PER ORAL
     Route: 048
     Dates: start: 20070601
  3. GLYBURIDE/METFORMIN (METFORMIN, GLIBENCLAMIDE) [Concomitant]

REACTIONS (2)
  - BLADDER NEOPLASM [None]
  - HYPOGLYCAEMIA [None]
